FAERS Safety Report 9318027 (Version 1)
Quarter: 2013Q2

REPORT INFORMATION
  Report Type: Spontaneous
  Country: US (occurrence: US)
  Receive Date: 20130530
  Receipt Date: 20130530
  Transmission Date: 20140414
  Serious: No
  Sender: FDA-Public Use
  Company Number: US-GLAXOSMITHKLINE-A1000896A

PATIENT
  Age: 75 Year
  Sex: Female

DRUGS (6)
  1. VENTOLIN [Suspect]
     Indication: ASTHMA
     Route: 055
     Dates: start: 20121112, end: 20121112
  2. AMITRIPTYLINE [Concomitant]
  3. MUCINEX [Concomitant]
  4. DIAZEPAM [Concomitant]
  5. PAXIL [Concomitant]
  6. TIAZAC [Concomitant]

REACTIONS (1)
  - Pruritus [Recovering/Resolving]
